FAERS Safety Report 4479076-1 (Version None)
Quarter: 2004Q4

REPORT INFORMATION
  Report Type: 
  Country: None (occurrence: None)
  Receive Date: 20041015
  Receipt Date: 20041001
  Transmission Date: 20050328
  Serious: Yes (Hospitalization)
  Sender: FDA-Public Use
  Company Number: WAES 0312AUS00032

PATIENT
  Age: 71 Year
  Sex: Female

DRUGS (10)
  1. ZETIA [Suspect]
     Indication: MIXED HYPERLIPIDAEMIA
     Dosage: SEE IMAGE
     Route: 048
     Dates: start: 20030526, end: 20030824
  2. ZETIA [Suspect]
     Indication: MIXED HYPERLIPIDAEMIA
     Dosage: SEE IMAGE
     Route: 048
     Dates: start: 20031209, end: 20040113
  3. FENOFIBRATE [Suspect]
     Indication: MIXED HYPERLIPIDAEMIA
     Dosage: SEE IMAGE
     Route: 048
     Dates: start: 20030526, end: 20030824
  4. FENOFIBRATE [Suspect]
     Indication: MIXED HYPERLIPIDAEMIA
     Dosage: SEE IMAGE
     Route: 048
     Dates: start: 20030825, end: 20031120
  5. FENOFIBRATE [Suspect]
     Indication: MIXED HYPERLIPIDAEMIA
     Dosage: SEE IMAGE
     Route: 048
     Dates: start: 20031209, end: 20040113
  6. ASPIRIN [Concomitant]
  7. CELECOXIB [Concomitant]
  8. CITALOPRAM HYDROBROMIDE [Concomitant]
  9. ESTRADIOL [Concomitant]
  10. OXAZEPAM [Concomitant]

REACTIONS (11)
  - ABDOMINAL ADHESIONS [None]
  - CHOLECYSTITIS ACUTE [None]
  - CHOLELITHIASIS [None]
  - COLLAPSE OF LUNG [None]
  - HEPATIC STEATOSIS [None]
  - LUNG CONSOLIDATION [None]
  - NAUSEA [None]
  - PAIN [None]
  - PLEURAL EFFUSION [None]
  - PROCEDURAL COMPLICATION [None]
  - PULMONARY THROMBOSIS [None]
